FAERS Safety Report 8115893 (Version 10)
Quarter: 2013Q2

REPORT INFORMATION
  Report Type: Report from Study
  Country: US (occurrence: US)
  Receive Date: 20110831
  Receipt Date: 20130510
  Transmission Date: 20140414
  Serious: Yes (Other)
  Sender: FDA-Public Use
  Company Number: PHHY2011US64633

PATIENT
  Age: 1 Year
  Sex: Male

DRUGS (10)
  1. AFINITOR [Suspect]
     Dosage: 2.5 MG, DAILY
     Route: 048
     Dates: start: 20110713, end: 20121220
  2. AFINITOR [Suspect]
     Dosage: UNK
     Route: 048
     Dates: start: 20130109
  3. TOPAMAX [Concomitant]
     Route: 065
  4. SABRIL [Concomitant]
     Route: 065
  5. ZONEGRAN [Concomitant]
  6. PHENOBARBITAL [Concomitant]
     Route: 065
  7. MIRALAX [Concomitant]
     Route: 065
  8. TAURINE [Concomitant]
     Route: 065
  9. VITAMIN B6 [Concomitant]
     Route: 065
  10. VIGABATRIN [Concomitant]

REACTIONS (14)
  - Complex partial seizures [Recovering/Resolving]
  - Infantile spasms [Recovering/Resolving]
  - Coma [Unknown]
  - Ocular neoplasm [Unknown]
  - Convulsion [Not Recovered/Not Resolved]
  - Rhinorrhoea [Recovering/Resolving]
  - Electrolyte imbalance [Unknown]
  - Somnolence [Not Recovered/Not Resolved]
  - Diarrhoea [Unknown]
  - Vomiting [Unknown]
  - Ear infection [Unknown]
  - Cough [Unknown]
  - Blood triglycerides increased [Not Recovered/Not Resolved]
  - Nasopharyngitis [Not Recovered/Not Resolved]
